FAERS Safety Report 6182184-0 (Version None)
Quarter: 2009Q2

REPORT INFORMATION
  Report Type: 
  Country: None (occurrence: None)
  Receive Date: 20090507
  Receipt Date: 20090427
  Transmission Date: 20091009
  Serious: Yes (Other)
  Sender: FDA-Public Use
  Company Number: PHHY2009CA10508

PATIENT
  Sex: Male

DRUGS (5)
  1. EXJADE [Suspect]
     Indication: IRON OVERLOAD
     Dosage: 1750 MG, UNK
     Dates: end: 20080318
  2. EXJADE [Suspect]
     Dosage: 1750 MG, UNK
     Route: 048
     Dates: start: 20090427, end: 20090427
  3. APO-AMOXI [Concomitant]
     Dosage: UNK
     Dates: start: 20081213, end: 20090125
  4. APO-AMOXI [Concomitant]
     Dosage: UNK
     Dates: start: 20090129
  5. CLINDAMYCIN HCL [Concomitant]
     Dosage: UNK

REACTIONS (4)
  - CHILLS [None]
  - MALAISE [None]
  - RASH PRURITIC [None]
  - TOOTHACHE [None]
